FAERS Safety Report 9441961 (Version 1)
Quarter: 2013Q3

REPORT INFORMATION
  Report Type: Spontaneous
  Country: PL (occurrence: PL)
  Receive Date: 20130806
  Receipt Date: 20130806
  Transmission Date: 20140515
  Serious: Yes (Other)
  Sender: FDA-Public Use
  Company Number: PL-009507513-1307POL016176

PATIENT
  Age: 31 Year
  Sex: Female

DRUGS (3)
  1. BETAMETHASONE [Suspect]
     Indication: MATERNAL THERAPY TO ENHANCE FOETAL LUNG MATURITY
     Dosage: 24 MG, UNK
  2. FENOTEROL [Concomitant]
     Dosage: 5MG X 8/DAY
     Route: 048
  3. VERAPAMIL [Concomitant]
     Dosage: 40MGX4/DAY
     Route: 048

REACTIONS (2)
  - Enterococcal infection [Recovered/Resolved]
  - Exposure during pregnancy [Recovered/Resolved]
